FAERS Safety Report 11302457 (Version 1)
Quarter: 2015Q3

REPORT INFORMATION
  Report Type: Spontaneous
  Country: JP (occurrence: JP)
  Receive Date: 20150723
  Receipt Date: 20150723
  Transmission Date: 20151125
  Serious: Yes (Death, Other)
  Sender: FDA-Public Use
  Company Number: JP-CIPLA LTD.-2015JP05890

PATIENT

DRUGS (26)
  1. CISPLATIN. [Suspect]
     Active Substance: CISPLATIN
     Indication: METASTASES TO LUNG
  2. BEVACIZUMAB [Suspect]
     Active Substance: BEVACIZUMAB
     Indication: METASTASES TO LUNG
  3. BEVACIZUMAB [Suspect]
     Active Substance: BEVACIZUMAB
     Indication: METASTASES TO THE MEDIASTINUM
  4. CISPLATIN. [Suspect]
     Active Substance: CISPLATIN
     Indication: METASTASES TO LYMPH NODES
     Dosage: 120 MG, ON DAY 8 OF EACH 28-DAY CYCLE
  5. TS-1 [Suspect]
     Active Substance: GIMERACIL\OTERACIL\TEGAFUR
     Indication: METASTASES TO LYMPH NODES
     Dosage: 120 MG, QD FOR 14 DAYS
     Route: 048
  6. LOPERAMIDE HYDROCHLORIDE. [Suspect]
     Active Substance: LOPERAMIDE HYDROCHLORIDE
     Indication: DIARRHOEA
     Route: 065
  7. IRINOTECAN [Suspect]
     Active Substance: IRINOTECAN
     Indication: METASTASES TO LYMPH NODES
  8. FLUOROURACIL. [Suspect]
     Active Substance: FLUOROURACIL
     Indication: BLADDER CANCER RECURRENT
  9. BEVACIZUMAB [Suspect]
     Active Substance: BEVACIZUMAB
     Indication: BLADDER CANCER RECURRENT
  10. 1-LEUCOVORIN [Suspect]
     Active Substance: LEUCOVORIN
     Indication: METASTASES TO THE MEDIASTINUM
  11. TS-1 [Suspect]
     Active Substance: GIMERACIL\OTERACIL\TEGAFUR
     Indication: METASTASES TO THE MEDIASTINUM
  12. IRINOTECAN [Suspect]
     Active Substance: IRINOTECAN
     Indication: METASTASES TO LUNG
  13. FLUOROURACIL. [Suspect]
     Active Substance: FLUOROURACIL
     Indication: METASTASES TO LYMPH NODES
     Dosage: 400 MG/M2, 14 DAYS CYCLE
     Route: 065
  14. FLUOROURACIL. [Suspect]
     Active Substance: FLUOROURACIL
     Indication: METASTASES TO LUNG
     Dosage: BOLUS 2400 MG/M2/46 H OF 14 DAYS CYCLE
     Route: 042
  15. 1-LEUCOVORIN [Suspect]
     Active Substance: LEUCOVORIN
     Indication: BLADDER CANCER RECURRENT
  16. FLUOROURACIL. [Suspect]
     Active Substance: FLUOROURACIL
     Indication: METASTASES TO THE MEDIASTINUM
  17. 1-LEUCOVORIN [Suspect]
     Active Substance: LEUCOVORIN
     Indication: METASTASES TO LYMPH NODES
     Dosage: 200 MG/M2, UNK
  18. 1-LEUCOVORIN [Suspect]
     Active Substance: LEUCOVORIN
     Indication: METASTASES TO LUNG
  19. TS-1 [Suspect]
     Active Substance: GIMERACIL\OTERACIL\TEGAFUR
     Indication: METASTASES TO LUNG
  20. TS-1 [Suspect]
     Active Substance: GIMERACIL\OTERACIL\TEGAFUR
     Indication: BLADDER CANCER RECURRENT
  21. HANGESHASHINTO [Suspect]
     Active Substance: HERBALS
     Indication: STOMATITIS
     Route: 065
  22. IRINOTECAN [Suspect]
     Active Substance: IRINOTECAN
     Indication: METASTASES TO THE MEDIASTINUM
  23. CISPLATIN. [Suspect]
     Active Substance: CISPLATIN
     Indication: BLADDER CANCER RECURRENT
  24. IRINOTECAN [Suspect]
     Active Substance: IRINOTECAN
     Indication: BLADDER CANCER RECURRENT
     Dosage: 180 MG/M2, UNK
  25. CISPLATIN. [Suspect]
     Active Substance: CISPLATIN
     Indication: METASTASES TO THE MEDIASTINUM
  26. BEVACIZUMAB [Suspect]
     Active Substance: BEVACIZUMAB
     Indication: METASTASES TO LYMPH NODES
     Dosage: 5 MG/KG, UNK
     Route: 065

REACTIONS (8)
  - Fatigue [Unknown]
  - Tumour necrosis [None]
  - Stomatitis [Unknown]
  - Malignant neoplasm progression [None]
  - Drug ineffective [None]
  - Metastases to lung [Fatal]
  - Disease progression [Fatal]
  - Diarrhoea [Unknown]
